FAERS Safety Report 23307610 (Version 1)
Quarter: 2023Q4

REPORT INFORMATION
  Report Type: Spontaneous
  Country: CN (occurrence: CN)
  Receive Date: 20231218
  Receipt Date: 20231218
  Transmission Date: 20240110
  Serious: Yes (Life-Threatening, Hospitalization, Other)
  Sender: FDA-Public Use
  Company Number: CN-002147023-NVSC2023CN267315

PATIENT
  Age: 63 Year
  Sex: Female
  Weight: 65 kg

DRUGS (2)
  1. ELTROMBOPAG [Suspect]
     Active Substance: ELTROMBOPAG
     Indication: Platelet count decreased
     Dosage: 75 MG, QD
     Route: 048
     Dates: start: 20231124, end: 20231201
  2. CYCLOSPORINE [Concomitant]
     Active Substance: CYCLOSPORINE
     Indication: Platelet count decreased
     Dosage: 100 MG, QD
     Route: 048
     Dates: start: 20231128, end: 20231204

REACTIONS (11)
  - Embolism [Recovering/Resolving]
  - Arteriosclerosis coronary artery [Recovering/Resolving]
  - Myocardial infarction [Recovering/Resolving]
  - Cardiac dysfunction [Recovering/Resolving]
  - Ventricular hypertrophy [Recovering/Resolving]
  - Left ventricular dysfunction [Recovering/Resolving]
  - N-terminal prohormone brain natriuretic peptide increased [Recovering/Resolving]
  - Electrocardiogram ST segment elevation [Recovering/Resolving]
  - Electrocardiogram ST segment depression [Recovering/Resolving]
  - Platelet count increased [Recovering/Resolving]
  - Platelet count decreased [Recovering/Resolving]

NARRATIVE: CASE EVENT DATE: 20231130
